FAERS Safety Report 9208027 (Version 1)
Quarter: 2013Q2

REPORT INFORMATION
  Report Type: Spontaneous
  Country: GB (occurrence: GB)
  Receive Date: 20130403
  Receipt Date: 20130403
  Transmission Date: 20140414
  Serious: Yes (Other)
  Sender: FDA-Public Use
  Company Number: GB-ACTELION-A-CH2013-81224

PATIENT
  Age: 79 Year
  Sex: Male
  Weight: 85.5 kg

DRUGS (13)
  1. TRACLEER [Suspect]
     Indication: PULMONARY HYPERTENSION
     Dosage: UNK MG, UNK
     Route: 048
     Dates: start: 20130312
  2. CLINDAMYCIN HYDROCHLORIDE [Concomitant]
     Dosage: UNK
     Dates: start: 20130226
  3. CODEINE PHOSPHATE [Concomitant]
     Dosage: UNK
     Dates: start: 20121205
  4. ERYTHROCIN [Concomitant]
     Dosage: UNK
     Dates: start: 20130222
  5. IBUPROFEN [Concomitant]
     Dosage: UNK
     Dates: start: 20121205
  6. LEVOTHYROXINE [Concomitant]
     Dosage: UNK
     Dates: start: 20121205
  7. OMEPRAZOLE [Concomitant]
     Dosage: UNK
     Dates: start: 20121205
  8. PARACETAMOL [Concomitant]
     Dosage: UNK
     Dates: start: 20121205
  9. RAMIPRIL [Concomitant]
     Dosage: UNK
     Dates: start: 20121109
  10. SILDENAFIL [Concomitant]
     Dosage: UNK
     Dates: start: 20120821
  11. SIMVASTATIN [Concomitant]
     Dosage: UNK
     Dates: start: 20121205
  12. SYNALAR [Concomitant]
     Dosage: UNK
     Dates: start: 20130227, end: 20130312
  13. WARFARIN [Concomitant]
     Dosage: UNK
     Dates: start: 20121109

REACTIONS (1)
  - Pemphigoid [Unknown]
